FAERS Safety Report 7360580-3 (Version None)
Quarter: 2011Q1

REPORT INFORMATION
  Report Type: 
  Country: None (occurrence: None)
  Receive Date: 20110310
  Receipt Date: 20110228
  Transmission Date: 20110831
  Serious: Yes (Other)
  Sender: FDA-Public Use
  Company Number: PHHO2005JP10574

PATIENT
  Age: 80 Year
  Sex: Female
  Weight: 46.9927 kg

DRUGS (5)
  1. VISUDYNE [Suspect]
     Indication: MACULAR DEGENERATION
     Dosage: 6 MG/M^2 ONCE IV
     Route: 042
     Dates: start: 20041105, end: 20041105
  2. ASPARA K [Concomitant]
  3. CIRCULETIN [Concomitant]
  4. ALFAROL [Concomitant]
  5. ADONA AC-17 [Concomitant]

REACTIONS (2)
  - RETINAL PIGMENT EPITHELIAL TEAR [None]
  - METAMORPHOPSIA [None]
